FAERS Safety Report 21398941 (Version 2)
Quarter: 2023Q1

REPORT INFORMATION
  Report Type: Report from Study
  Country: US (occurrence: US)
  Receive Date: 20221001
  Receipt Date: 20230313
  Transmission Date: 20230418
  Serious: Yes (Other)
  Sender: FDA-Public Use
  Company Number: US-ABBVIE-4132956

PATIENT
  Sex: Male

DRUGS (9)
  1. HUMIRA [Suspect]
     Active Substance: ADALIMUMAB
     Indication: Psoriatic arthropathy
     Route: 058
     Dates: end: 202205
  2. HUMIRA [Suspect]
     Active Substance: ADALIMUMAB
     Dosage: FIRST AND LAST ADMIN DATE: 2022
     Route: 058
  3. HUMIRA [Suspect]
     Active Substance: ADALIMUMAB
     Route: 058
     Dates: start: 20230310
  4. LISINOPRIL [Concomitant]
     Active Substance: LISINOPRIL
     Indication: Product used for unknown indication
     Route: 048
  5. GLIPIZIDE [Concomitant]
     Active Substance: GLIPIZIDE
     Indication: Product used for unknown indication
     Dosage: FORM STRENGTH:10 MG
     Route: 048
  6. ATORVASTATIN [Concomitant]
     Active Substance: ATORVASTATIN
     Indication: Product used for unknown indication
     Route: 048
  7. AMLODIPINE BESYLATE [Concomitant]
     Active Substance: AMLODIPINE BESYLATE
     Indication: Product used for unknown indication
     Route: 048
  8. PIOGLITAZONE [Concomitant]
     Active Substance: PIOGLITAZONE
     Indication: Product used for unknown indication
  9. ASPIRIN [Concomitant]
     Active Substance: ASPIRIN
     Indication: Product used for unknown indication
     Dosage: 81 TBE 81MG

REACTIONS (2)
  - Spinal operation [Recovered/Resolved]
  - COVID-19 [Recovered/Resolved]

NARRATIVE: CASE EVENT DATE: 20220101
